FAERS Safety Report 10176829 (Version 2)
Quarter: 2014Q2

REPORT INFORMATION
  Report Type: Spontaneous
  Country: PR (occurrence: US)
  Receive Date: 20140516
  Receipt Date: 20140528
  Transmission Date: 20141212
  Serious: No
  Sender: FDA-Public Use
  Company Number: US-PFIZER INC-2014133737

PATIENT
  Sex: Female

DRUGS (2)
  1. ATORVASTATIN CALCIUM [Suspect]
     Dosage: 10 MG, UNK
  2. ATORVASTATIN CALCIUM [Suspect]
     Dosage: 20 MG, UNK
     Dates: end: 2014

REACTIONS (3)
  - Balance disorder [Recovering/Resolving]
  - Muscle disorder [Recovering/Resolving]
  - Drug intolerance [Unknown]
